FAERS Safety Report 8024221-4 (Version None)
Quarter: 2012Q1

REPORT INFORMATION
  Report Type: 
  Country: None (occurrence: None)
  Receive Date: 20120105
  Receipt Date: 20120102
  Transmission Date: 20120608
  Serious: Yes (Other)
  Sender: FDA-Public Use
  Company Number: PHHY2010CA092824

PATIENT
  Sex: Female

DRUGS (2)
  1. ZOLEDRONOC ACID [Suspect]
     Dosage: UNK UKN (YEARLY), UNK
     Route: 042
     Dates: start: 20101221
  2. ZOLEDRONOC ACID [Suspect]
     Indication: OSTEOPOROSIS
     Dosage: UNK UKN (YEARLY), UNK
     Route: 042
     Dates: start: 20091210

REACTIONS (3)
  - RENAL FAILURE CHRONIC [None]
  - BLOOD CREATININE INCREASED [None]
  - NASOPHARYNGITIS [None]
